FAERS Safety Report 16663341 (Version 1)
Quarter: 2019Q3

REPORT INFORMATION
  Report Type: Report from Study
  Country: US (occurrence: US)
  Receive Date: 20190802
  Receipt Date: 20190802
  Transmission Date: 20191004
  Serious: No
  Sender: FDA-Public Use
  Company Number: US-EXELIXIS-CABO-19019887

PATIENT
  Sex: Male

DRUGS (10)
  1. NORCO [Concomitant]
     Active Substance: ACETAMINOPHEN\HYDROCODONE BITARTRATE
  2. MULTI COMPLETE [Concomitant]
  3. MORPHINE SULFATE. [Concomitant]
     Active Substance: MORPHINE SULFATE
  4. IRON [Concomitant]
     Active Substance: IRON
  5. METOPROLOL SUCCINATE. [Concomitant]
     Active Substance: METOPROLOL SUCCINATE
  6. DIGOXIN. [Concomitant]
     Active Substance: DIGOXIN
  7. DEXAMETHASONE. [Concomitant]
     Active Substance: DEXAMETHASONE
  8. COLACE [Concomitant]
     Active Substance: DOCUSATE SODIUM
  9. CABOMETYX [Suspect]
     Active Substance: CABOZANTINIB S-MALATE
     Indication: RENAL CANCER
     Dosage: 60 MG, QD
     Route: 048
     Dates: start: 20190130
  10. ELIQUIS [Concomitant]
     Active Substance: APIXABAN

REACTIONS (2)
  - Stomatitis [Unknown]
  - Nasal ulcer [Unknown]
